FAERS Safety Report 6181057-7 (Version None)
Quarter: 2009Q2

REPORT INFORMATION
  Report Type: 
  Country: None (occurrence: None)
  Receive Date: 20090504
  Receipt Date: 20090424
  Transmission Date: 20091009
  Serious: Yes (Other)
  Sender: FDA-Public Use
  Company Number: 2009SP008844

PATIENT
  Sex: Female

DRUGS (1)
  1. DESLORATADINE [Suspect]

REACTIONS (2)
  - APLASTIC ANAEMIA [None]
  - BONE MARROW FAILURE [None]
